FAERS Safety Report 8622692-3 (Version None)
Quarter: 2012Q3

REPORT INFORMATION
  Report Type: 
  Country: None (occurrence: None)
  Receive Date: 20120827
  Receipt Date: 20120816
  Transmission Date: 20120928
  Serious: Yes (Hospitalization)
  Sender: FDA-Public Use
  Company Number: US-BAYER-2012-026146

PATIENT
  Age: 39 Year
  Sex: Female
  Weight: 95.692 kg

DRUGS (4)
  1. YAZ [Suspect]
     Indication: CONTRACEPTION
     Dosage: UNK
     Dates: start: 20061101, end: 20070201
  2. ZOLOFT [Concomitant]
     Dosage: 50 MG, UNK
     Route: 048
  3. ADVIL [Concomitant]
  4. MULTI-VITAMIN [Concomitant]

REACTIONS (3)
  - INJURY [None]
  - PAIN [None]
  - PULMONARY EMBOLISM [None]
